FAERS Safety Report 23826779 (Version 2)
Quarter: 2025Q2

REPORT INFORMATION
  Report Type: Spontaneous
  Country: CN (occurrence: CN)
  Receive Date: 20240507
  Receipt Date: 20250608
  Transmission Date: 20250716
  Serious: Yes (Life-Threatening, Hospitalization)
  Sender: COHERUS
  Company Number: CN-SHANGHAI JUNSHI BIOSCIENCES CO., LTD.-CN2024009809

PATIENT

DRUGS (3)
  1. TORIPALIMAB [Suspect]
     Active Substance: TORIPALIMAB
     Indication: Clear cell renal cell carcinoma
     Dosage: 240 MG, Q3W
     Route: 041
     Dates: start: 20240327, end: 20240327
  2. DIPHENHYDRAMINE [Concomitant]
     Active Substance: DIPHENHYDRAMINE
     Indication: Product used for unknown indication
  3. AXITINIB [Concomitant]
     Active Substance: AXITINIB
     Indication: Clear cell renal cell carcinoma
     Route: 048

REACTIONS (2)
  - Immune-mediated myositis [Unknown]
  - Off label use [Unknown]

NARRATIVE: CASE EVENT DATE: 20240327
